FAERS Safety Report 10151977 (Version 1)
Quarter: 2014Q2

REPORT INFORMATION
  Report Type: Spontaneous
  Country: FR (occurrence: FR)
  Receive Date: 20140505
  Receipt Date: 20140505
  Transmission Date: 20141212
  Serious: Yes (Life-Threatening, Hospitalization)
  Sender: FDA-Public Use
  Company Number: FR-CELGENEUS-056-21880-14044715

PATIENT
  Age: 45 Year
  Sex: Male

DRUGS (6)
  1. REVLIMID [Suspect]
     Indication: LYMPHOMA
     Dosage: 0.7DF
     Route: 048
     Dates: start: 201307, end: 20140404
  2. TAREG [Concomitant]
     Indication: PRODUCT USED FOR UNKNOWN INDICATION
     Route: 065
  3. TAHOR [Concomitant]
     Indication: PRODUCT USED FOR UNKNOWN INDICATION
     Dosage: 40 MILLIGRAM
     Route: 065
  4. TAHOR [Concomitant]
     Dosage: 80 MILLIGRAM
     Route: 065
  5. ISOPTINE [Concomitant]
     Indication: PRODUCT USED FOR UNKNOWN INDICATION
     Route: 065
  6. KARDEGIC [Concomitant]
     Indication: PRODUCT USED FOR UNKNOWN INDICATION
     Dosage: 160 MILLIGRAM
     Route: 065

REACTIONS (1)
  - Myocardial infarction [Recovered/Resolved with Sequelae]
